FAERS Safety Report 7461123-6 (Version None)
Quarter: 2011Q2

REPORT INFORMATION
  Report Type: 
  Country: None (occurrence: None)
  Receive Date: 20110505
  Receipt Date: 20091012
  Transmission Date: 20111010
  Serious: Yes (Other)
  Sender: FDA-Public Use
  Company Number: DE-GENENTECH-318111

PATIENT
  Age: 87 Year
  Sex: Female

DRUGS (1)
  1. LUCENTIS [Suspect]
     Indication: AGE-RELATED MACULAR DEGENERATION
     Dosage: UNK
     Route: 031

REACTIONS (6)
  - GASTROENTERITIS VIRAL [None]
  - BEDRIDDEN [None]
  - VISUAL ACUITY REDUCED [None]
  - MALAISE [None]
  - SCIATICA [None]
  - NEUROPATHY PERIPHERAL [None]
